FAERS Safety Report 9687967 (Version 2)
Quarter: 2013Q4

REPORT INFORMATION
  Report Type: Spontaneous
  Country: DE (occurrence: DE)
  Receive Date: 20131114
  Receipt Date: 20131203
  Transmission Date: 20140711
  Serious: Yes (Hospitalization, Other)
  Sender: FDA-Public Use
  Company Number: PHHY2013DE128500

PATIENT
  Sex: Female

DRUGS (4)
  1. AFINITOR [Suspect]
     Indication: BREAST CANCER
     Dosage: 10 MG, DAILY
     Route: 048
     Dates: start: 201303
  2. AFINITOR [Suspect]
     Dosage: 5 MG, DAILY
     Route: 048
     Dates: start: 20130425
  3. ZOMETA [Suspect]
     Indication: BREAST CANCER
     Dates: start: 201111
  4. EXEMESTAN [Concomitant]
     Indication: BREAST CANCER
     Dates: start: 201303

REACTIONS (5)
  - Femoral neck fracture [Recovered/Resolved]
  - Malignant neoplasm progression [Not Recovered/Not Resolved]
  - Metastases to bone [Recovering/Resolving]
  - Blood creatinine increased [Not Recovered/Not Resolved]
  - Stomatitis [Recovered/Resolved]
